FAERS Safety Report 11677499 (Version 1)
Quarter: 2015Q4

REPORT INFORMATION
  Report Type: Spontaneous
  Country: BR (occurrence: BR)
  Receive Date: 20151028
  Receipt Date: 20151028
  Transmission Date: 20160304
  Serious: No
  Sender: FDA-Public Use
  Company Number: BR-B.I. PHARMACEUTICALS,INC./RIDGEFIELD-2015-BI-59270BR

PATIENT
  Age: 75 Year
  Sex: Female
  Weight: 63 kg

DRUGS (4)
  1. CLO [Concomitant]
     Active Substance: CLOMIPRAMINE HYDROCHLORIDE
     Indication: DEPRESSION
     Dosage: 10 MG
     Route: 048
     Dates: start: 2007
  2. TRADJENTA [Suspect]
     Active Substance: LINAGLIPTIN
     Indication: DIABETES MELLITUS
     Dosage: 5 MG
     Route: 048
     Dates: start: 20150916, end: 20151020
  3. ALOPURINOL [Concomitant]
     Active Substance: ALLOPURINOL
     Indication: BLOOD URIC ACID
     Dosage: 100 MG
     Route: 048
     Dates: start: 201505
  4. CARDIU [Concomitant]
     Indication: SLEEP DISORDER
     Dosage: 2 MG
     Route: 048
     Dates: start: 2007

REACTIONS (9)
  - Rash [Not Recovered/Not Resolved]
  - Oral mucosal blistering [Not Recovered/Not Resolved]
  - Thirst [Not Recovered/Not Resolved]
  - Lip swelling [Not Recovered/Not Resolved]
  - Dry throat [Not Recovered/Not Resolved]
  - Skin discolouration [Not Recovered/Not Resolved]
  - Cough [Not Recovered/Not Resolved]
  - Pain [Not Recovered/Not Resolved]
  - Lip blister [Not Recovered/Not Resolved]

NARRATIVE: CASE EVENT DATE: 20151018
